FAERS Safety Report 21220840 (Version 3)
Quarter: 2023Q1

REPORT INFORMATION
  Report Type: Report from Study
  Country: US (occurrence: US)
  Receive Date: 20220817
  Receipt Date: 20230203
  Transmission Date: 20230418
  Serious: Yes (Other)
  Sender: FDA-Public Use
  Company Number: US-TAKEDA-2021TUS058108

PATIENT
  Sex: Male

DRUGS (1)
  1. HUMAN IMMUNOGLOBULIN G [Suspect]
     Active Substance: HUMAN IMMUNOGLOBULIN G
     Indication: Immunodeficiency common variable
     Dosage: UNK
     Route: 042

REACTIONS (10)
  - Cardiac failure congestive [Unknown]
  - Pneumonia [Unknown]
  - Influenza [Unknown]
  - Protein urine present [Unknown]
  - Illness [Unknown]
  - Blood pressure increased [Unknown]
  - Back pain [Unknown]
  - Pyrexia [Unknown]
  - Insurance issue [Unknown]
  - Product use issue [Unknown]
